FAERS Safety Report 8085538-0 (Version None)
Quarter: 2012Q1

REPORT INFORMATION
  Report Type: 
  Country: None (occurrence: None)
  Receive Date: 20120128
  Receipt Date: 20110506
  Transmission Date: 20120608
  Serious: No
  Sender: FDA-Public Use
  Company Number: US-ABBOTT-11P-163-0713480-00

PATIENT
  Sex: Female

DRUGS (18)
  1. DIOVAN [Concomitant]
     Indication: HYPERTENSION
  2. CUTAR SOAK [Concomitant]
     Indication: PSORIATIC ARTHROPATHY
     Dosage: APPLIED TO FEET DAILY
  3. VITAMIN D [Concomitant]
     Indication: SUPPLEMENTATION THERAPY
  4. FLEXERIL [Concomitant]
     Indication: PAIN
  5. CRETARD [Concomitant]
     Indication: PSORIATIC ARTHROPATHY
     Dosage: APPLIED TO FEET DAILY
  6. VIACTIVE CHEWABLES [Concomitant]
     Indication: SUPPLEMENTATION THERAPY
  7. HYDROCHLOROTHIAZIDE [Concomitant]
     Indication: FLUID RETENTION
  8. HUMIRA [Suspect]
     Indication: PSORIATIC ARTHROPATHY
     Route: 058
     Dates: start: 20110321
  9. ASPIRIN [Concomitant]
     Indication: ANTICOAGULANT THERAPY
  10. NAPROXEN [Concomitant]
     Indication: MUSCLE RELAXANT THERAPY
  11. UREA [Concomitant]
     Indication: PSORIATIC ARTHROPATHY
     Dosage: APPLIED TO FEET DAILY
  12. FOLIC ACID [Concomitant]
     Indication: VITAMIN SUPPLEMENTATION
  13. FLUCCINONIDE [Concomitant]
     Indication: PSORIATIC ARTHROPATHY
     Dosage: APPLIED TO FEET DAILY
  14. METFFORMIN HYDROCHLORIDE [Concomitant]
     Indication: TYPE 2 DIABETES MELLITUS
  15. LIPITOR [Concomitant]
     Indication: HYPERCHOLESTEROLAEMIA
  16. CYCLOBENZAPRINE [Concomitant]
     Indication: INSOMNIA
     Dosage: 3 TABS AT HS
  17. METHOTREXATE [Concomitant]
     Indication: INFLAMMATION
  18. METHOTREXATE [Suspect]
     Indication: PRODUCT USED FOR UNKNOWN INDICATION

REACTIONS (7)
  - TINNITUS [None]
  - BLOOD PRESSURE INCREASED [None]
  - PAIN IN EXTREMITY [None]
  - INJECTION SITE PAIN [None]
  - INJECTION SITE HAEMATOMA [None]
  - SINUSITIS [None]
  - HYPOAESTHESIA [None]
